FAERS Safety Report 21310456 (Version 1)
Quarter: 2022Q3

REPORT INFORMATION
  Report Type: Spontaneous
  Country: FR (occurrence: FR)
  Receive Date: 20220909
  Receipt Date: 20220909
  Transmission Date: 20221026
  Serious: Yes (Hospitalization, Disabling, Congenital Anomaly, Other)
  Sender: FDA-Public Use
  Company Number: FR-NOVARTISPH-NVSC2022FR192528

PATIENT
  Age: 23 Year
  Sex: Male
  Weight: 3.07 kg

DRUGS (3)
  1. TEGRETOL [Suspect]
     Active Substance: CARBAMAZEPINE
     Indication: Foetal exposure during pregnancy
     Dosage: MATERNAL DOSE: 1 DF,QD (200 MG PER DAY)
     Route: 064
     Dates: start: 199402, end: 19941029
  2. VALPROATE SODIUM [Suspect]
     Active Substance: VALPROATE SODIUM
     Indication: Foetal exposure during pregnancy
     Dosage: MATERNAL DOSE: 2 DF,QD (400 MG PER DAY)
     Route: 064
     Dates: start: 199402, end: 19941029
  3. FERROUS SULFATE\FOLIC ACID\GASTRIC MUCIN [Concomitant]
     Active Substance: FERROUS SULFATE\FOLIC ACID\GASTRIC MUCIN
     Indication: Foetal exposure during pregnancy
     Dosage: MATERNAL DOSE: UNK
     Route: 064

REACTIONS (42)
  - Anal haemorrhage [Unknown]
  - Rectal haemorrhage [Unknown]
  - Skin striae [Unknown]
  - Developmental delay [Unknown]
  - Penis disorder [Unknown]
  - Pyelonephritis [Unknown]
  - Behaviour disorder [Not Recovered/Not Resolved]
  - Cholesteatoma [Unknown]
  - Congenital anomaly [Not Recovered/Not Resolved]
  - Visual impairment [Unknown]
  - Bulimia nervosa [Unknown]
  - Myopia [Unknown]
  - Congenital genital malformation [Unknown]
  - Deafness [Unknown]
  - Urinary tract infection [Unknown]
  - Asthma [Unknown]
  - Disability [Unknown]
  - Erectile dysfunction [Unknown]
  - Bronchitis [Unknown]
  - Aggression [Unknown]
  - Foetal exposure during pregnancy [Unknown]
  - Dyscalculia [Unknown]
  - Labyrinthine fistula [Unknown]
  - Hypospadias [Recovered/Resolved]
  - Ear infection [Unknown]
  - Speech disorder developmental [Unknown]
  - Sleep apnoea syndrome [Unknown]
  - Astigmatism [Unknown]
  - Obesity [Unknown]
  - Constipation [Unknown]
  - Mixed anxiety and depressive disorder [Unknown]
  - Congenital neurological disorder [Not Recovered/Not Resolved]
  - Intellectual disability [Unknown]
  - Micturition disorder [Unknown]
  - Anxiety [Unknown]
  - Respiratory disorder [Unknown]
  - Learning disorder [Unknown]
  - Impulsive behaviour [Unknown]
  - Penile exfoliation [Unknown]
  - Ankle fracture [Unknown]
  - Overweight [Unknown]
  - Irritability [Unknown]

NARRATIVE: CASE EVENT DATE: 20180322
